FAERS Safety Report 9214480 (Version 1)
Quarter: 2013Q2

REPORT INFORMATION
  Report Type: Report from Study
  Country: SG (occurrence: SG)
  Receive Date: 20130405
  Receipt Date: 20130405
  Transmission Date: 20140414
  Serious: Yes (Other)
  Sender: FDA-Public Use
  Company Number: SG-ROCHE-1209495

PATIENT
  Sex: 0

DRUGS (2)
  1. BEVACIZUMAB [Suspect]
     Indication: HEPATIC CANCER
     Route: 042
  2. RAPAMYCIN [Suspect]
     Indication: HEPATIC CANCER
     Dosage: UPTO DOSE LEVEL 6: MAXIMUM DOSE OF 6 MG.
     Route: 048

REACTIONS (8)
  - Diarrhoea [Unknown]
  - Proteinuria [Unknown]
  - Decreased appetite [Unknown]
  - Fatigue [Unknown]
  - Hyperglycaemia [Unknown]
  - Aspartate aminotransferase increased [Unknown]
  - Peritonitis bacterial [Unknown]
  - Scrotal abscess [Unknown]
